FAERS Safety Report 10088308 (Version 2)
Quarter: 2014Q3

REPORT INFORMATION
  Report Type: Report from Study
  Country: CN (occurrence: CN)
  Receive Date: 20140421
  Receipt Date: 20140708
  Transmission Date: 20150326
  Serious: Yes (Other)
  Sender: FDA-Public Use
  Company Number: CN-BRISTOL-MYERS SQUIBB COMPANY-20632709

PATIENT
  Age: 73 Year
  Sex: Female
  Weight: 85 kg

DRUGS (4)
  1. METOPROLOL TARTRATE TABS [Concomitant]
     Dosage: 1DF = 1/2 TABLET
  2. BYETTA [Suspect]
     Active Substance: EXENATIDE
     Indication: TYPE 2 DIABETES MELLITUS
     Route: 058
     Dates: start: 20140405, end: 2014
  3. VALSARTAN. [Concomitant]
     Active Substance: VALSARTAN
     Indication: HYPERTENSION
     Dosage: 1DF = 1TABLET
  4. BYETTA [Suspect]
     Active Substance: EXENATIDE
     Indication: OBESITY
     Route: 058
     Dates: start: 20140405, end: 2014

REACTIONS (3)
  - Loss of consciousness [Recovering/Resolving]
  - Extrasystoles [Unknown]
  - Arrhythmia [Unknown]

NARRATIVE: CASE EVENT DATE: 2014
